FAERS Safety Report 9015359 (Version 2)
Quarter: 2013Q1

REPORT INFORMATION
  Report Type: Spontaneous
  Country: US (occurrence: None)
  Receive Date: 20130103
  Receipt Date: 20130111
  Transmission Date: 20140127
  Serious: Yes (Hospitalization)
  Sender: FDA-Public Use
  Company Number: DKLU1087416

PATIENT
  Age: 6 Year
  Sex: Female

DRUGS (9)
  1. SABRIL (TABLET) (SABRIL) (VIGABATRIN) (500 MG, TABLET) [Suspect]
     Indication: COMPLEX PARTIAL SEIZURES
     Dosage: AM
     Dates: start: 20121116
  2. ONFI [Concomitant]
  3. FELBATOL (FELBAMATE) [Concomitant]
  4. VIMPAT (LACOSAMIDE) [Concomitant]
  5. KEPPRA (LEVETIRACETAM) [Concomitant]
  6. ZOLOFT (SERTRALINE HYDROCHLORIDE) [Concomitant]
  7. PREVACID (LANSOPRAZOLE) [Concomitant]
  8. LACTOBACILLUS (LACTOBACILLUS ACIDOPHILUS) [Concomitant]
  9. PHENOBARBITAL (PHENOBARBITAL) [Concomitant]

REACTIONS (3)
  - Pneumonia [None]
  - Convulsion [None]
  - Staphylococcus test positive [None]
